FAERS Safety Report 17000842 (Version 1)
Quarter: 2019Q4

REPORT INFORMATION
  Report Type: Report from Study
  Country: CA (occurrence: CA)
  Receive Date: 20191106
  Receipt Date: 20191106
  Transmission Date: 20200122
  Serious: Yes (Death, Other)
  Sender: FDA-Public Use
  Company Number: CA-PFIZER INC-2019473146

PATIENT
  Age: 74 Year
  Sex: Male
  Weight: 130 kg

DRUGS (7)
  1. ESBRIET [Suspect]
     Active Substance: PIRFENIDONE
     Indication: IDIOPATHIC PULMONARY FIBROSIS
     Dosage: 801 MG, 3X/DAY
     Route: 048
  2. ESBRIET [Suspect]
     Active Substance: PIRFENIDONE
     Dosage: 534 MG, 3X/DAY
     Route: 048
  3. OMEPRAZOLE. [Concomitant]
     Active Substance: OMEPRAZOLE
     Dosage: UNK
  4. OXYGEN. [Concomitant]
     Active Substance: OXYGEN
     Dosage: UNK
  5. GABAPENTIN. [Suspect]
     Active Substance: GABAPENTIN
     Dosage: UNK
  6. ESBRIET [Suspect]
     Active Substance: PIRFENIDONE
     Dosage: 267 MG, 3X/DAY
     Route: 048
  7. RAMIPRIL. [Concomitant]
     Active Substance: RAMIPRIL
     Dosage: UNK

REACTIONS (14)
  - Breast mass [Fatal]
  - Vomiting [Fatal]
  - Dizziness [Fatal]
  - Muscle twitching [Fatal]
  - Pain in extremity [Fatal]
  - Psychomotor hyperactivity [Fatal]
  - Nausea [Fatal]
  - Death [Fatal]
  - Decreased appetite [Fatal]
  - Insomnia [Fatal]
  - Pulmonary function test decreased [Fatal]
  - Diarrhoea [Fatal]
  - Rash [Fatal]
  - Weight decreased [Fatal]
